FAERS Safety Report 4551484-X (Version None)
Quarter: 2005Q1

REPORT INFORMATION
  Report Type: 
  Country: None (occurrence: None)
  Receive Date: 20050110
  Receipt Date: 20050104
  Transmission Date: 20050727
  Serious: Yes (Life-Threatening)
  Sender: FDA-Public Use
  Company Number: 2005-123927-NL

PATIENT
  Age: 43 Year
  Sex: Female

DRUGS (3)
  1. MIRTAZAPINE [Suspect]
     Indication: SCHIZOAFFECTIVE DISORDER
     Dosage: 45 MG QD ORAL
     Route: 048
     Dates: start: 20020901, end: 20040501
  2. MEDROXYPROGESTERONE ACETATE [Suspect]
     Indication: CONTRACEPTION
     Dosage: DF INTRAMUSCULAR
     Route: 030
     Dates: start: 20030101
  3. OLANZAPINE [Concomitant]

REACTIONS (1)
  - PULMONARY EMBOLISM [None]
